FAERS Safety Report 8209536-9 (Version None)
Quarter: 2012Q1

REPORT INFORMATION
  Report Type: 
  Country: None (occurrence: None)
  Receive Date: 20120314
  Receipt Date: 20120309
  Transmission Date: 20120608
  Serious: Yes (Disabling, Other)
  Sender: FDA-Public Use
  Company Number: US-PFIZER INC-2012064447

PATIENT
  Age: 32 Year
  Sex: Male

DRUGS (11)
  1. GALENIC /HYDROCHLOROTHIAZIDE/VALSARTAN/ [Concomitant]
     Indication: HYPERTENSION
     Dosage: 160 MG / 12.5 MG, ONCE A DAY
     Route: 048
  2. HYOSCYAMINE [Concomitant]
     Indication: GASTROINTESTINAL PAIN
     Dosage: 0.125-0.250 MG 3/DAY AS NEEDED
     Route: 048
  3. BUDESONIDE [Suspect]
     Indication: RHINITIS ALLERGIC
     Dosage: 2 PUFFS/DAY TO EACH NOSTRIL
     Route: 045
  4. MOXIFLOXACIN [Concomitant]
     Indication: CROHN'S DISEASE
     Dosage: 400 MG, 1X/DAY
     Route: 048
  5. CETIRIZINE HCL AND PSEUDOEPHEDRINE [Concomitant]
     Indication: RHINITIS ALLERGIC
     Dosage: 5 MG/120 MG DAILY AS NEEDED
  6. DIPHENOXYLATE HCL AND ATROPINE SULFATE [Concomitant]
     Indication: DIARRHOEA
     Dosage: 2.5-5 MG/0.025-0.050 MG AS NEEDED
     Route: 048
  7. FAMOTIDINE [Concomitant]
     Indication: GASTROINTESTINAL PAIN
     Dosage: 40 MG, 2X/DAY
     Route: 048
  8. BUDESONIDE [Concomitant]
     Indication: CROHN'S DISEASE
     Dosage: 12 MG, 1X/DAY
     Route: 048
  9. METRONIDAZOLE [Concomitant]
     Indication: CROHN'S DISEASE
     Dosage: 500 MG, 3X/DAY
     Route: 048
  10. ATORVASTATIN CALCIUM [Suspect]
     Indication: HYPERCHOLESTEROLAEMIA
     Dosage: 20 MG, EVERY EVENING
  11. PREDNISONE [Concomitant]
     Indication: CROHN'S DISEASE
     Dosage: 5-60 MG/DAY
     Route: 048

REACTIONS (3)
  - DEAFNESS BILATERAL [None]
  - DEAFNESS NEUROSENSORY [None]
  - TINNITUS [None]
